FAERS Safety Report 8262829-1 (Version None)
Quarter: 2012Q2

REPORT INFORMATION
  Report Type: 
  Country: None (occurrence: None)
  Receive Date: 20120405
  Receipt Date: 20120327
  Transmission Date: 20120825
  Serious: Yes (Other)
  Sender: FDA-Public Use
  Company Number: GB-TEVA-318321ISR

PATIENT
  Age: 70 Year
  Sex: Male

DRUGS (3)
  1. NITROFURANTOIN [Suspect]
     Indication: URINARY TRACT INFECTION
     Route: 048
     Dates: start: 20111224, end: 20111230
  2. ACETAMINOPHEN [Concomitant]
     Indication: PAIN
     Route: 048
     Dates: start: 20111227
  3. CO-DYDRAMOL [Concomitant]
     Indication: PAIN
     Route: 048
     Dates: start: 20111224, end: 20111226

REACTIONS (5)
  - GLYCOSURIA [None]
  - PARAESTHESIA [None]
  - BURNING SENSATION [None]
  - SLEEP DISORDER [None]
  - NEUROPATHY PERIPHERAL [None]
